FAERS Safety Report 8647452 (Version 7)
Quarter: 2013Q2

REPORT INFORMATION
  Report Type: Spontaneous
  Country: US (occurrence: US)
  Receive Date: 20120703
  Receipt Date: 20130502
  Transmission Date: 20140414
  Serious: Yes (Other)
  Sender: FDA-Public Use
  Company Number: US-PFIZER INC-2012156183

PATIENT
  Age: 68 Year
  Sex: Female
  Weight: 61.22 kg

DRUGS (3)
  1. LYRICA [Suspect]
     Indication: NEUROPATHY PERIPHERAL
     Dosage: 150 MG, 3X/DAY
     Route: 048
     Dates: start: 20100323, end: 2012
  2. LYRICA [Suspect]
     Dosage: 150 MG, 2X/DAY
     Route: 048
     Dates: start: 2012
  3. ZOLOFT [Suspect]
     Dosage: UNK

REACTIONS (9)
  - Paralysis [Unknown]
  - Condition aggravated [Unknown]
  - Dyspnoea [Not Recovered/Not Resolved]
  - Eye disorder [Not Recovered/Not Resolved]
  - Breast pain [Not Recovered/Not Resolved]
  - Breast discomfort [Not Recovered/Not Resolved]
  - Panic attack [Unknown]
  - Feeling abnormal [Unknown]
  - Anxiety [Unknown]
